FAERS Safety Report 4743362-8 (Version None)
Quarter: 2005Q3

REPORT INFORMATION
  Report Type: 
  Country: None (occurrence: None)
  Receive Date: 20050809
  Receipt Date: 20050727
  Transmission Date: 20060218
  Serious: Yes (Other)
  Sender: FDA-Public Use
  Company Number: 2005100633

PATIENT
  Age: 33 Year
  Sex: Female
  Weight: 57.6068 kg

DRUGS (1)
  1. DEPO-PROVERA [Suspect]
     Indication: CONTRACEPTION
     Dosage: FIRST INJECTION/TRIMESTRAL), INTRAMUSCULAR; SEE IMAGE
     Dates: start: 20031201, end: 20031201

REACTIONS (3)
  - COLITIS ULCERATIVE [None]
  - PROCTITIS ULCERATIVE [None]
  - RECTAL HAEMORRHAGE [None]
